FAERS Safety Report 9135689 (Version 1)
Quarter: 2013Q1

REPORT INFORMATION
  Report Type: Spontaneous
  Country: US (occurrence: US)
  Receive Date: 20130304
  Receipt Date: 20130304
  Transmission Date: 20140127
  Serious: No
  Sender: FDA-Public Use
  Company Number: US-ENDO PHARMACEUTICALS INC.-OPER20120076

PATIENT
  Sex: Female
  Weight: 49.94 kg

DRUGS (5)
  1. OPANA ER 20MG [Suspect]
     Indication: PAIN
     Route: 048
  2. PERCOCET 10/325 1 [Suspect]
     Indication: PAIN
     Dosage: UNKNOWN
     Route: 048
  3. VALIUM [Concomitant]
     Indication: INSOMNIA
  4. RITALIN [Concomitant]
     Indication: NARCOLEPSY
  5. FIORICET [Concomitant]
     Indication: NARCOLEPSY
     Route: 048

REACTIONS (4)
  - Drug screen positive [Unknown]
  - Abnormal dreams [Recovered/Resolved]
  - Diarrhoea [Recovered/Resolved]
  - Abdominal pain upper [Recovered/Resolved]
